FAERS Safety Report 5569892-7 (Version None)
Quarter: 2007Q4

REPORT INFORMATION
  Report Type: 
  Country: None (occurrence: None)
  Receive Date: 20071220
  Receipt Date: 20071212
  Transmission Date: 20080405
  Serious: Yes (Hospitalization)
  Sender: FDA-Public Use
  Company Number: DE-ABBOTT-07P-062-0429644-00

PATIENT
  Age: 33 Year
  Sex: Male

DRUGS (15)
  1. KLACID [Suspect]
     Indication: BRONCHOPNEUMONIA
     Route: 048
     Dates: start: 20070423, end: 20070424
  2. KLACID [Suspect]
     Indication: TRACHEOBRONCHITIS
  3. QUETIAPINE [Interacting]
     Indication: MENTAL DISORDER
     Dosage: 300-0 MG
     Route: 048
     Dates: start: 20070424, end: 20070424
  4. QUETIAPINE [Interacting]
     Route: 048
     Dates: start: 20070406, end: 20070407
  5. QUETIAPINE [Interacting]
     Route: 048
     Dates: start: 20070408, end: 20070408
  6. QUETIAPINE [Interacting]
     Route: 048
     Dates: start: 20070409, end: 20070410
  7. QUETIAPINE [Interacting]
     Route: 048
     Dates: start: 20070411, end: 20070423
  8. QUETIAPINE [Interacting]
     Route: 048
     Dates: start: 20070426, end: 20070426
  9. QUETIAPINE [Interacting]
     Route: 048
     Dates: start: 20070427, end: 20070503
  10. VALPROATE SODIUM [Concomitant]
     Indication: MENTAL DISORDER
     Route: 048
     Dates: start: 20070418
  11. ESOMEPRAZOLE MAGNESIUM [Concomitant]
     Indication: DRUG USE FOR UNKNOWN INDICATION
     Route: 048
  12. METFORMIN HCL [Concomitant]
     Indication: DIABETES MELLITUS
     Route: 048
  13. GLYBURIDE [Concomitant]
     Indication: DIABETES MELLITUS
     Route: 048
  14. UNACID [Concomitant]
     Indication: BRONCHOPNEUMONIA
     Route: 048
     Dates: start: 20070423, end: 20070424
  15. UNACID [Concomitant]
     Indication: TRACHEOBRONCHITIS

REACTIONS (7)
  - DRUG INTERACTION [None]
  - DRUG LEVEL INCREASED [None]
  - DYSARTHRIA [None]
  - DYSSTASIA [None]
  - MANIA [None]
  - RESTLESSNESS [None]
  - SEDATION [None]
